FAERS Safety Report 4657506-X (Version None)
Quarter: 2005Q2

REPORT INFORMATION
  Report Type: 
  Country: None (occurrence: None)
  Receive Date: 20050506
  Receipt Date: 20050425
  Transmission Date: 20051028
  Serious: Yes (Hospitalization, Other)
  Sender: FDA-Public Use
  Company Number: HQWYE378627APR05

PATIENT
  Age: 68 Year
  Sex: Male
  Weight: 100.9 kg

DRUGS (2)
  1. RAPAMUNE [Suspect]
     Indication: PROPHYLAXIS AGAINST TRANSPLANT REJECTION
     Dosage: SEE IMAGE
     Route: 048
     Dates: start: 20031007, end: 20031101
  2. RAPAMUNE [Suspect]
     Indication: PROPHYLAXIS AGAINST TRANSPLANT REJECTION
     Dosage: SEE IMAGE
     Route: 048
     Dates: start: 20031120

REACTIONS (13)
  - ALPHA HAEMOLYTIC STREPTOCOCCAL INFECTION [None]
  - BRONCHOALVEOLAR LAVAGE ABNORMAL [None]
  - HIATUS HERNIA [None]
  - IMMUNOSUPPRESSION [None]
  - OESOPHAGEAL CANDIDIASIS [None]
  - OESOPHAGEAL ULCER [None]
  - PLEURAL EFFUSION [None]
  - PNEUMONIA [None]
  - PULMONARY OEDEMA [None]
  - PURULENCE [None]
  - SPUTUM CULTURE POSITIVE [None]
  - STREPTOCOCCAL INFECTION [None]
  - VENTRICULAR DYSFUNCTION [None]
